FAERS Safety Report 6723439-8 (Version None)
Quarter: 2010Q2

REPORT INFORMATION
  Report Type: 
  Country: None (occurrence: None)
  Receive Date: 20100513
  Receipt Date: 20100506
  Transmission Date: 20101027
  Serious: Yes (Hospitalization)
  Sender: FDA-Public Use
  Company Number: PHHY2010IN27149

PATIENT
  Sex: Male

DRUGS (1)
  1. SEBIVO [Suspect]
     Dosage: UNK
     Route: 048
     Dates: start: 20090901

REACTIONS (1)
  - ACUTE RESPIRATORY DISTRESS SYNDROME [None]
